FAERS Safety Report 24096300 (Version 1)
Quarter: 2024Q3

REPORT INFORMATION
  Report Type: Spontaneous
  Country: US (occurrence: US)
  Receive Date: 20240716
  Receipt Date: 20240716
  Transmission Date: 20241017
  Serious: No
  Sender: ELI LILLY AND CO
  Company Number: US-ELI_LILLY_AND_COMPANY-US202407009287

PATIENT
  Sex: Female

DRUGS (3)
  1. VERZENIO [Suspect]
     Active Substance: ABEMACICLIB
     Indication: Product used for unknown indication
     Dosage: 50 MG, BID
     Route: 065
  2. VERZENIO [Suspect]
     Active Substance: ABEMACICLIB
     Dosage: 100 MG, BID
     Route: 065
  3. VERZENIO [Suspect]
     Active Substance: ABEMACICLIB
     Dosage: 50 MG, BID
     Route: 065

REACTIONS (1)
  - Diarrhoea [Recovered/Resolved]

NARRATIVE: CASE EVENT DATE: 20240713
